FAERS Safety Report 5799254-9 (Version None)
Quarter: 2008Q3

REPORT INFORMATION
  Report Type: 
  Country: None (occurrence: None)
  Receive Date: 20080702
  Receipt Date: 20080623
  Transmission Date: 20090109
  Serious: Yes (Hospitalization, Other)
  Sender: FDA-Public Use
  Company Number: AU-PFIZER INC-2008047841

PATIENT
  Sex: Female

DRUGS (8)
  1. SUTENT [Suspect]
     Indication: RENAL CELL CARCINOMA
     Route: 048
     Dates: start: 20080401, end: 20080520
  2. WARFARIN SODIUM [Concomitant]
  3. ASPIRIN [Concomitant]
  4. SIMVASTATIN [Concomitant]
  5. METOPROLOL SUCCINATE [Concomitant]
  6. ISORBID [Concomitant]
  7. PERINDOPRIL ERBUMINE [Concomitant]
  8. LEVOTHYROXINE SODIUM [Concomitant]

REACTIONS (3)
  - ANGINA UNSTABLE [None]
  - FATIGUE [None]
  - THROMBOCYTOPENIA [None]
